FAERS Safety Report 7621016-8 (Version None)
Quarter: 2011Q3

REPORT INFORMATION
  Report Type: 
  Country: None (occurrence: None)
  Receive Date: 20110719
  Receipt Date: 20100716
  Transmission Date: 20111222
  Serious: No
  Sender: FDA-Public Use
  Company Number: US-KINGPHARMUSA00001-K201000899

PATIENT
  Sex: Male

DRUGS (4)
  1. LEVOXYL [Suspect]
     Dosage: 112.5 MCG, UNK
     Route: 048
  2. LEVOXYL [Suspect]
     Dosage: 100 MCG, UNK
     Route: 048
     Dates: start: 20090101
  3. LEVOXYL [Suspect]
     Dosage: 100 MCG, UNK
     Route: 048
  4. LEVOXYL [Suspect]
     Dosage: 88 MCG, UNK
     Route: 048

REACTIONS (2)
  - PRURITUS GENERALISED [None]
  - INSOMNIA [None]
